FAERS Safety Report 13964137 (Version 1)
Quarter: 2017Q3

REPORT INFORMATION
  Report Type: Spontaneous
  Country: TW (occurrence: TW)
  Receive Date: 20170913
  Receipt Date: 20170913
  Transmission Date: 20171128
  Serious: Yes (Death, Other)
  Sender: FDA-Public Use
  Company Number: TW-BRISTOL-MYERS SQUIBB COMPANY-BMS-2017-081914

PATIENT
  Sex: Female
  Weight: 41 kg

DRUGS (1)
  1. OPDIVO [Suspect]
     Active Substance: NIVOLUMAB
     Indication: MALIGNANT NEOPLASM OF CHOROID
     Dosage: 120 MG, Q2WK
     Route: 042
     Dates: start: 20170603

REACTIONS (3)
  - Malignant neoplasm progression [Fatal]
  - Septic shock [Fatal]
  - Product use in unapproved indication [Unknown]
